FAERS Safety Report 19479694 (Version 1)
Quarter: 2021Q2

REPORT INFORMATION
  Report Type: Spontaneous
  Country: US (occurrence: US)
  Receive Date: 20210630
  Receipt Date: 20210630
  Transmission Date: 20210717
  Serious: No
  Sender: FDA-Public Use
  Company Number: US-TAKEDA-2021TUS039551

PATIENT
  Sex: Female
  Weight: 92 kg

DRUGS (1)
  1. ENTYVIO [Suspect]
     Active Substance: VEDOLIZUMAB
     Indication: COLITIS ULCERATIVE
     Dosage: 300 MILLIGRAM
     Route: 042
     Dates: start: 2015

REACTIONS (5)
  - Poor venous access [Unknown]
  - Fear of injection [Unknown]
  - Fatigue [Unknown]
  - Vasodilatation [Unknown]
  - Administration site bruise [Unknown]
